FAERS Safety Report 9667452 (Version 1)
Quarter: 2013Q4

REPORT INFORMATION
  Report Type: Spontaneous
  Country: US (occurrence: US)
  Receive Date: 20131101
  Receipt Date: 20131101
  Transmission Date: 20140711
  Serious: No
  Sender: FDA-Public Use
  Company Number: US-ORACLE-2011S1000028

PATIENT
  Age: 71 Year
  Sex: Male

DRUGS (3)
  1. KRYSTEXXA INJECTION [Suspect]
     Indication: GOUTY TOPHUS
     Route: 042
     Dates: start: 20110228, end: 20110228
  2. KRYSTEXXA INJECTION [Suspect]
     Indication: GOUTY TOPHUS
     Route: 042
     Dates: start: 20110314, end: 20110314
  3. METHOTREXATE [Concomitant]
     Indication: PSORIASIS
     Dates: end: 2011

REACTIONS (1)
  - Drug ineffective [Unknown]
